FAERS Safety Report 19567965 (Version 4)
Quarter: 2021Q3

REPORT INFORMATION
  Report Type: Report from Study
  Country: CA (occurrence: CA)
  Receive Date: 20210715
  Receipt Date: 20210810
  Transmission Date: 20211014
  Serious: Yes (Other)
  Sender: FDA-Public Use
  Company Number: CA-ASTRAZENECA-2021A617177

PATIENT
  Age: 65 Year
  Sex: Female
  Weight: 78.2 kg

DRUGS (17)
  1. ACALABRUTINIB. [Suspect]
     Active Substance: ACALABRUTINIB
     Indication: CHRONIC LYMPHOCYTIC LEUKAEMIA
     Dosage: 200
     Route: 048
     Dates: start: 20210407, end: 20210506
  2. SENOKOT [Concomitant]
     Active Substance: SENNOSIDES
     Indication: CONSTIPATION
     Dosage: 10.0MG AS REQUIRED
     Route: 048
     Dates: start: 2000, end: 20210707
  3. ACALABRUTINIB. [Suspect]
     Active Substance: ACALABRUTINIB
     Indication: CHRONIC LYMPHOCYTIC LEUKAEMIA
     Dosage: 200
     Route: 048
     Dates: start: 20210114, end: 20210210
  4. ACALABRUTINIB. [Suspect]
     Active Substance: ACALABRUTINIB
     Indication: CHRONIC LYMPHOCYTIC LEUKAEMIA
     Dosage: 200
     Route: 048
     Dates: start: 20210311, end: 20210406
  5. MAGNESIUM [Concomitant]
     Active Substance: MAGNESIUM
     Indication: VITAMIN SUPPLEMENTATION
     Route: 048
     Dates: start: 2010, end: 20210707
  6. ACALABRUTINIB. [Suspect]
     Active Substance: ACALABRUTINIB
     Indication: CHRONIC LYMPHOCYTIC LEUKAEMIA
     Dosage: 200
     Route: 048
     Dates: start: 20210507, end: 20210605
  7. ZOPICLONE [Concomitant]
     Active Substance: ZOPICLONE
     Indication: INSOMNIA
     Route: 048
     Dates: start: 2018, end: 20210707
  8. ROSUVASTATIN. [Concomitant]
     Active Substance: ROSUVASTATIN
     Indication: HYPERCHOLESTEROLAEMIA
     Route: 048
     Dates: start: 2019, end: 20210707
  9. ACALABRUTINIB. [Suspect]
     Active Substance: ACALABRUTINIB
     Indication: CHRONIC LYMPHOCYTIC LEUKAEMIA
     Dosage: 200
     Route: 048
     Dates: start: 20201120, end: 20201216
  10. ACALABRUTINIB. [Suspect]
     Active Substance: ACALABRUTINIB
     Indication: CHRONIC LYMPHOCYTIC LEUKAEMIA
     Dosage: 200
     Route: 048
     Dates: start: 20201217, end: 20210113
  11. ZINC. [Concomitant]
     Active Substance: ZINC
     Indication: VITAMIN SUPPLEMENTATION
     Route: 048
     Dates: start: 2010, end: 20210707
  12. VITAMIN B12 [Concomitant]
     Active Substance: CYANOCOBALAMIN
     Indication: VITAMIN SUPPLEMENTATION
     Route: 048
     Dates: start: 2010, end: 20210707
  13. ACALABRUTINIB. [Suspect]
     Active Substance: ACALABRUTINIB
     Indication: CHRONIC LYMPHOCYTIC LEUKAEMIA
     Dosage: 200
     Route: 048
     Dates: start: 20210211, end: 20210310
  14. VITAMIN D [Concomitant]
     Active Substance: VITAMIN D NOS
     Indication: VITAMIN SUPPLEMENTATION
     Route: 048
     Dates: start: 2010, end: 20210707
  15. RANITIDINE. [Concomitant]
     Active Substance: RANITIDINE
     Indication: GASTROOESOPHAGEAL REFLUX DISEASE
     Route: 048
     Dates: start: 2008, end: 20210707
  16. ACALABRUTINIB. [Suspect]
     Active Substance: ACALABRUTINIB
     Indication: CHRONIC LYMPHOCYTIC LEUKAEMIA
     Dosage: 200
     Route: 048
     Dates: start: 20201119, end: 20201119
  17. ACALABRUTINIB. [Suspect]
     Active Substance: ACALABRUTINIB
     Indication: CHRONIC LYMPHOCYTIC LEUKAEMIA
     Dosage: 200
     Route: 048
     Dates: start: 20210606, end: 20210630

REACTIONS (1)
  - Hepatitis B reactivation [Not Recovered/Not Resolved]

NARRATIVE: CASE EVENT DATE: 20210706
